APPROVED DRUG PRODUCT: BREXPIPRAZOLE
Active Ingredient: BREXPIPRAZOLE
Strength: 1MG
Dosage Form/Route: TABLET;ORAL
Application: A213669 | Product #003
Applicant: HETERO LABS LTD UNIT V
Approved: Nov 20, 2023 | RLD: No | RS: No | Type: DISCN